FAERS Safety Report 19582022 (Version 3)
Quarter: 2021Q3

REPORT INFORMATION
  Report Type: Report from Study
  Country: AR (occurrence: AR)
  Receive Date: 20210720
  Receipt Date: 20210804
  Transmission Date: 20211014
  Serious: Yes (Other)
  Sender: FDA-Public Use
  Company Number: NVSC2021AR150793

PATIENT
  Sex: Female

DRUGS (5)
  1. DICLOFENAC POTASSIUM. [Suspect]
     Active Substance: DICLOFENAC POTASSIUM
     Indication: MUSCLE CONTRACTURE
     Dosage: UNK
     Route: 065
  2. CONCOR [Concomitant]
     Active Substance: BISOPROLOL FUMARATE
     Indication: PRODUCT USED FOR UNKNOWN INDICATION
     Dosage: 1 DF, QD
     Route: 065
  3. DIOVAN [Suspect]
     Active Substance: VALSARTAN
     Dosage: 1 DF, QD (FIVE YEARS AGO)
     Route: 065
  4. MODURETIC 5?50 [Concomitant]
     Active Substance: AMILORIDE HYDROCHLORIDE\HYDROCHLOROTHIAZIDE
     Indication: PRODUCT USED FOR UNKNOWN INDICATION
     Dosage: (3 OF 50) 5 MG, QD
     Route: 065
  5. DIOVAN [Suspect]
     Active Substance: VALSARTAN
     Indication: HYPERTENSION
     Dosage: 1 DF, QD (MORE THAN 6 YEARS AGO)
     Route: 065

REACTIONS (6)
  - Product use in unapproved indication [Unknown]
  - Cough [Recovering/Resolving]
  - Throat irritation [Recovering/Resolving]
  - Epistaxis [Unknown]
  - Muscle contracture [Unknown]
  - Blood pressure increased [Recovering/Resolving]
